FAERS Safety Report 11760657 (Version 1)
Quarter: 2015Q4

REPORT INFORMATION
  Report Type: Spontaneous
  Country: US (occurrence: US)
  Receive Date: 20151120
  Receipt Date: 20151120
  Transmission Date: 20160304
  Serious: No
  Sender: FDA-Public Use
  Company Number: US-ELI_LILLY_AND_COMPANY-US201210002799

PATIENT
  Age: 76 Year
  Sex: Female

DRUGS (3)
  1. FORTEO [Suspect]
     Active Substance: TERIPARATIDE
     Dosage: 1 DF, QD
     Route: 065
     Dates: start: 20120824, end: 20121004
  2. FORTEO [Suspect]
     Active Substance: TERIPARATIDE
     Indication: OSTEOPOROSIS
     Dosage: UNK
     Route: 065
  3. FORTEO [Suspect]
     Active Substance: TERIPARATIDE
     Dosage: UNK UNK, WEEKLY (1/W)
     Route: 065
     Dates: start: 20121104

REACTIONS (5)
  - Pain in extremity [Unknown]
  - Bone pain [Unknown]
  - Bone density decreased [Unknown]
  - Fear of disease [Unknown]
  - Headache [Unknown]

NARRATIVE: CASE EVENT DATE: 2012
